FAERS Safety Report 7899116-7 (Version None)
Quarter: 2011Q4

REPORT INFORMATION
  Report Type: 
  Country: None (occurrence: None)
  Receive Date: 20111107
  Receipt Date: 20110913
  Transmission Date: 20120403
  Serious: Yes (Hospitalization, Other)
  Sender: FDA-Public Use
  Company Number: US-AMGEN-USASP2011044779

PATIENT
  Age: 61 Year
  Sex: Male

DRUGS (2)
  1. REMICADE [Concomitant]
     Indication: PSORIATIC ARTHROPATHY
  2. ENBREL [Suspect]
     Indication: PSORIATIC ARTHROPATHY
     Dosage: 50 MG, QWK
     Dates: start: 20090828, end: 20100501

REACTIONS (2)
  - FURUNCLE [None]
  - STAPHYLOCOCCAL INFECTION [None]
